FAERS Safety Report 6699418-6 (Version None)
Quarter: 2010Q2

REPORT INFORMATION
  Report Type: 
  Country: None (occurrence: None)
  Receive Date: 20100427
  Receipt Date: 20100408
  Transmission Date: 20101027
  Serious: Yes (Other)
  Sender: FDA-Public Use
  Company Number: PHHY2010TW25671

PATIENT
  Age: 5 Year
  Sex: Female

DRUGS (7)
  1. CYCLOSPORINE [Suspect]
     Indication: BONE MARROW TRANSPLANT
     Dosage: 3 MG/ KG DAILY
     Route: 042
  2. CYCLOSPORINE [Suspect]
     Indication: PROPHYLAXIS AGAINST GRAFT VERSUS HOST DISEASE
  3. CYCLOSPORINE [Suspect]
     Route: 048
  4. CYCLOSPORINE [Suspect]
     Dosage: 10 MG DAILY
     Route: 048
  5. METHOTREXATE [Suspect]
     Indication: PROPHYLAXIS AGAINST GRAFT VERSUS HOST DISEASE
     Dosage: 15 MG/M2
  6. BUSULFEX [Concomitant]
     Dosage: 20 MG/KG
  7. CYCLOPHOSPHAMIDE [Concomitant]
     Dosage: 120 MG/KG

REACTIONS (12)
  - CYANOSIS [None]
  - FOCAL SEGMENTAL GLOMERULOSCLEROSIS [None]
  - GAZE PALSY [None]
  - GRAND MAL CONVULSION [None]
  - HAEMATURIA [None]
  - HYPONATRAEMIA [None]
  - LIVER FUNCTION TEST ABNORMAL [None]
  - MUCOSAL INFLAMMATION [None]
  - OEDEMA PERIPHERAL [None]
  - PROTEINURIA [None]
  - SWELLING FACE [None]
  - WEIGHT INCREASED [None]
